FAERS Safety Report 9379890 (Version 2)
Quarter: 2013Q3

REPORT INFORMATION
  Report Type: Spontaneous
  Country: US (occurrence: US)
  Receive Date: 20130702
  Receipt Date: 20130815
  Transmission Date: 20140515
  Serious: Yes (Hospitalization)
  Sender: FDA-Public Use
  Company Number: US-PFIZER INC-2013196021

PATIENT
  Age: 58 Year
  Sex: Female
  Weight: 94.8 kg

DRUGS (5)
  1. ZOLOFT [Suspect]
     Indication: DEPRESSION
     Dosage: 200 MG, 1X/DAY
     Route: 048
     Dates: start: 2005
  2. METOPROLOL [Concomitant]
     Dosage: 25 MG, UNK
  3. METFORMIN [Concomitant]
     Dosage: 1000 MG, UNK
  4. FLORAJEN 3 [Concomitant]
     Dosage: UNK
  5. INDOMETHACIN [Concomitant]
     Dosage: 25 MG, UNK

REACTIONS (1)
  - Pericardial effusion [Unknown]
